FAERS Safety Report 14759745 (Version 1)
Quarter: 2018Q2

REPORT INFORMATION
  Report Type: Report from Study
  Country: CA (occurrence: CA)
  Receive Date: 20180413
  Receipt Date: 20180413
  Transmission Date: 20180711
  Serious: Yes (Other)
  Sender: FDA-Public Use
  Company Number: CA-HLSUS-2018-CA-000599

PATIENT
  Age: 32 Year
  Sex: Male

DRUGS (1)
  1. CLOZARIL [Suspect]
     Active Substance: CLOZAPINE
     Route: 048
     Dates: start: 20130528

REACTIONS (2)
  - Leukocytosis [Unknown]
  - Neutrophilia [Unknown]

NARRATIVE: CASE EVENT DATE: 20180411
